FAERS Safety Report 5873954-4 (Version None)
Quarter: 2008Q3

REPORT INFORMATION
  Report Type: 
  Country: None (occurrence: None)
  Receive Date: 20080908
  Receipt Date: 20080826
  Transmission Date: 20090109
  Serious: Yes (Death, Hospitalization)
  Sender: FDA-Public Use
  Company Number: GB-MERCK-0809GBR00035

PATIENT
  Age: 50 Year
  Sex: Female

DRUGS (5)
  1. DECADRON SRC [Suspect]
     Indication: OEDEMA
     Route: 048
  2. STREPTOMYCIN [Concomitant]
     Route: 065
  3. ISONIAZID [Concomitant]
     Route: 065
  4. RIFAMPIN [Concomitant]
     Route: 065
  5. PYRAZINAMIDE [Concomitant]
     Route: 065

REACTIONS (3)
  - DEATH [None]
  - DRUG INEFFECTIVE [None]
  - LUNG ADENOCARCINOMA METASTATIC [None]
